FAERS Safety Report 9261832 (Version 2)
Quarter: 2013Q2

REPORT INFORMATION
  Report Type: Spontaneous
  Country: FR (occurrence: FR)
  Receive Date: 20130429
  Receipt Date: 20130618
  Transmission Date: 20140414
  Serious: Yes (Other)
  Sender: FDA-Public Use
  Company Number: FR-BAUSCH-BL-2013-002295

PATIENT
  Age: 78 Year
  Sex: Male

DRUGS (4)
  1. YELLOX 0.9 MG/ML EYE DROPS, SOLUTION [Suspect]
     Indication: POSTOPERATIVE CARE
     Route: 047
     Dates: start: 20130305, end: 20130320
  2. YELLOX 0.9 MG/ML EYE DROPS, SOLUTION [Suspect]
     Indication: CATARACT OPERATION
     Route: 047
     Dates: start: 20130312, end: 20130327
  3. CHIBROCADRON [Suspect]
     Indication: POSTOPERATIVE CARE
     Route: 047
     Dates: start: 20130305, end: 20130320
  4. CHIBROCADRON [Suspect]
     Indication: CATARACT OPERATION
     Route: 047
     Dates: start: 20130312, end: 20130327

REACTIONS (1)
  - Cystoid macular oedema [Recovered/Resolved]
